FAERS Safety Report 7880592-0 (Version None)
Quarter: 2011Q4

REPORT INFORMATION
  Report Type: 
  Country: None (occurrence: None)
  Receive Date: 20111101
  Receipt Date: 20100707
  Transmission Date: 20120403
  Serious: No
  Sender: FDA-Public Use
  Company Number: US-BAYER-201027267NA

PATIENT
  Age: 63 Year
  Sex: Male

DRUGS (14)
  1. SIMVASTATIN [Concomitant]
  2. TESTIM [Concomitant]
  3. LORATADINE [Concomitant]
  4. SULINDAC [Concomitant]
  5. INSULIN [Concomitant]
  6. EFFEXOR [Concomitant]
  7. DIGOXIN [Concomitant]
  8. ACTOS [Concomitant]
  9. ADDERALL 5 [Concomitant]
  10. VITAMIN D [Concomitant]
  11. TIMOLOL MALEATE [Concomitant]
  12. LEVITRA [Suspect]
     Indication: ERECTILE DYSFUNCTION
     Dosage: UNK
     Route: 048
     Dates: start: 20100501, end: 20100601
  13. DOXAZOSIN MESYLATE [Concomitant]
  14. FLOMAX [Concomitant]

REACTIONS (1)
  - ERECTILE DYSFUNCTION [None]
